FAERS Safety Report 15742317 (Version 7)
Quarter: 2019Q2

REPORT INFORMATION
  Report Type: Spontaneous
  Country: TW (occurrence: TW)
  Receive Date: 20181219
  Receipt Date: 20190611
  Transmission Date: 20190711
  Serious: Yes (Other)
  Sender: FDA-Public Use
  Company Number: TW-PFIZER INC-2018373581

PATIENT
  Age: 56 Year
  Sex: Female

DRUGS (2)
  1. SUTENT [Suspect]
     Active Substance: SUNITINIB MALATE
     Indication: RENAL CELL CARCINOMA
     Dosage: 50 MG, CYCLIC (DAILY, TWO WEEKS ON AND ONE WEEK OFF)
     Route: 048
     Dates: start: 20180824, end: 201809
  2. SUTENT [Suspect]
     Active Substance: SUNITINIB MALATE
     Dosage: 37.5 MG, ONCE DAILY
     Route: 048

REACTIONS (15)
  - Urinary tract infection [Recovering/Resolving]
  - Mouth ulceration [Recovering/Resolving]
  - Alopecia [Not Recovered/Not Resolved]
  - Nasopharyngitis [Unknown]
  - Constipation [Recovering/Resolving]
  - Neoplasm progression [Unknown]
  - Haemorrhoidal haemorrhage [Recovering/Resolving]
  - Disease recurrence [Recovering/Resolving]
  - Oropharyngeal pain [Unknown]
  - Gingival swelling [Recovering/Resolving]
  - Swelling [Recovering/Resolving]
  - Blood pressure increased [Recovering/Resolving]
  - Dry mouth [Recovering/Resolving]
  - Diarrhoea [Recovering/Resolving]
  - Palmar-plantar erythrodysaesthesia syndrome [Not Recovered/Not Resolved]

NARRATIVE: CASE EVENT DATE: 2018
